FAERS Safety Report 7356435-0 (Version None)
Quarter: 2011Q1

REPORT INFORMATION
  Report Type: 
  Country: None (occurrence: None)
  Receive Date: 20110316
  Receipt Date: 20110301
  Transmission Date: 20110831
  Serious: Yes (Other)
  Sender: FDA-Public Use
  Company Number: US-BAYER-2011-019689

PATIENT
  Sex: Male
  Weight: 110 kg

DRUGS (6)
  1. BACTINE PAIN RELIEVING CLEANSING ANESTHETIC SPRAY [Suspect]
     Dosage: UNK UNK, ONCE
     Route: 061
     Dates: start: 20110206, end: 20110206
  2. SPIRONOLACTONE [Concomitant]
  3. BENAZEPRIL [Concomitant]
  4. WARFARIN [Concomitant]
  5. FUROSEMIDE [Concomitant]
  6. COREG [Concomitant]

REACTIONS (2)
  - BLUE TOE SYNDROME [None]
  - SKIN EXFOLIATION [None]
